FAERS Safety Report 20710511 (Version 1)
Quarter: 2022Q2

REPORT INFORMATION
  Report Type: Spontaneous
  Country: CN (occurrence: CN)
  Receive Date: 20220414
  Receipt Date: 20220414
  Transmission Date: 20220720
  Serious: Yes (Life-Threatening, Other)
  Sender: FDA-Public Use
  Company Number: CN-LUPIN PHARMACEUTICALS INC.-2022-05483

PATIENT
  Age: 36 Year
  Sex: Male

DRUGS (5)
  1. DECITABINE [Suspect]
     Active Substance: DECITABINE
     Indication: Acute myeloid leukaemia
     Dosage: 25 MG, QD, IV DRIP DECITABINE 25MG INJECTION EVERY DAY FROM DAY 1-DAY 5 (CDHAG REGIMEN)
     Route: 041
  2. TUCIDINOSTAT [Suspect]
     Active Substance: TUCIDINOSTAT
     Indication: Acute myeloid leukaemia
     Dosage: 30 MG, TWICE A WEEK FROM DAY 1-DAY 11 (CDHAG REGIMEN)
     Route: 048
  3. CYTARABINE [Suspect]
     Active Substance: CYTARABINE
     Indication: Acute myeloid leukaemia
     Dosage: 15 MILLIGRAM/SQ. METER, BID, SC CYTARABINE 15 MG/M 2 INJECTION EVERY 12 HOURS FROM DAY 3-DAY 9 (CDHA
     Route: 058
  4. OMACETAXINE MEPESUCCINATE [Suspect]
     Active Substance: OMACETAXINE MEPESUCCINATE
     Indication: Acute myeloid leukaemia
     Dosage: 2 MG, QD, IV DRIP OMACETAXINE MEPESUCCINATE 2MG INJECTION EVERY DAY FROM DAY 3-DAY 9 (CDHAG REGIMEN)
     Route: 041
  5. FILGRASTIM [Suspect]
     Active Substance: FILGRASTIM
     Indication: Acute myeloid leukaemia
     Dosage: 300 MICROGRAM, QD,SC FILGRASTIM 300MUG INJECTION EVERY DAY FROM DAY 1-DAY 9 (CDHAG REGIMEN)
     Route: 058

REACTIONS (3)
  - Myelosuppression [Unknown]
  - Pneumonia [Recovered/Resolved]
  - Nausea [Unknown]
